FAERS Safety Report 25003277 (Version 1)
Quarter: 2025Q1

REPORT INFORMATION
  Report Type: Spontaneous
  Country: GB (occurrence: GB)
  Receive Date: 20250224
  Receipt Date: 20250224
  Transmission Date: 20250409
  Serious: Yes (Hospitalization, Other)
  Sender: ACCORD
  Company Number: None

PATIENT
  Age: 88 Year
  Sex: Female
  Weight: 72 kg

DRUGS (1)
  1. LACOSAMIDE [Suspect]
     Active Substance: LACOSAMIDE
     Indication: Epilepsy

REACTIONS (1)
  - Hyperkalaemia [Recovered/Resolved]
